FAERS Safety Report 4407841-5 (Version None)
Quarter: 2004Q3

REPORT INFORMATION
  Report Type: 
  Country: None (occurrence: None)
  Receive Date: 20040726
  Receipt Date: 20040714
  Transmission Date: 20050211
  Serious: Yes (Other)
  Sender: FDA-Public Use
  Company Number: GB-GLAXOSMITHKLINE-B0339093A

PATIENT
  Age: 57 Year
  Sex: Female

DRUGS (1)
  1. SEROXAT [Suspect]
     Route: 065

REACTIONS (7)
  - ABNORMAL DREAMS [None]
  - ANGINA PECTORIS [None]
  - ANXIETY [None]
  - DEPRESSION [None]
  - GASTRIC ULCER [None]
  - SUICIDAL IDEATION [None]
  - SUICIDE ATTEMPT [None]
